FAERS Safety Report 8387830-9 (Version None)
Quarter: 2012Q2

REPORT INFORMATION
  Report Type: 
  Country: None (occurrence: None)
  Receive Date: 20120525
  Receipt Date: 20120319
  Transmission Date: 20120825
  Serious: No
  Sender: FDA-Public Use
  Company Number: US-BRISTOL-MYERS SQUIBB COMPANY-16462731

PATIENT
  Age: 54 Year
  Sex: Female
  Weight: 82 kg

DRUGS (2)
  1. METOPROLOL [Concomitant]
  2. KOMBIGLYZE XR [Suspect]
     Indication: TYPE 2 DIABETES MELLITUS
     Dosage: STARTED UNSPECIFIED DATE, DISCONTINUED ON UNSPECIFIED DATE 1DF: 5MG/ 1000MG  RESTARTED:16MAR12

REACTIONS (1)
  - DIARRHOEA [None]
